FAERS Safety Report 17105932 (Version 3)
Quarter: 2020Q1

REPORT INFORMATION
  Report Type: Spontaneous
  Country: US (occurrence: US)
  Receive Date: 20191203
  Receipt Date: 20200127
  Transmission Date: 20200409
  Serious: Yes (Death, Hospitalization, Other)
  Sender: FDA-Public Use
  Company Number: US-PFIZER INC-2019522854

PATIENT
  Age: 78 Year
  Sex: Male

DRUGS (15)
  1. METFORMIN [Concomitant]
     Active Substance: METFORMIN HYDROCHLORIDE
     Dosage: 1000 MG, 2X/DAY (AM-PM)
  2. LOSARTAN. [Concomitant]
     Active Substance: LOSARTAN
     Dosage: 25 MG, 1X/DAY (AM)
  3. COSAMIN DS [CHONDROITIN SULFATE SODIUM;GLUCOSAMINE HYDROCHLORIDE;MANGA [Concomitant]
     Dosage: UNK, 2X/DAY  (AM-PM)
  4. LYRICA [Suspect]
     Active Substance: PREGABALIN
     Indication: DIABETIC NEUROPATHY
     Dosage: 75 MG, 2X/DAY (AM-PM)
     Dates: start: 201707
  5. LIPITOR [Concomitant]
     Active Substance: ATORVASTATIN CALCIUM
     Dosage: 40 MG, 1X/DAY (PM)
  6. LYRICA [Suspect]
     Active Substance: PREGABALIN
     Indication: NEUROPATHY PERIPHERAL
  7. TRESIBA [Concomitant]
     Active Substance: INSULIN DEGLUDEC
     Dosage: UNK, AS NEEDED (PM-AS NEEDED)
  8. FUROSEMIDE. [Concomitant]
     Active Substance: FUROSEMIDE
     Dosage: 80 MG, 2X/DAY (AM-PM)
  9. FINASTERIDE. [Concomitant]
     Active Substance: FINASTERIDE
     Dosage: 5 MG, 1X/DAY
  10. COREG [Concomitant]
     Active Substance: CARVEDILOL
     Dosage: 3.25 MG, 2X/DAY (PM)
  11. VITAMIN D3 [Concomitant]
     Active Substance: CHOLECALCIFEROL
     Dosage: 5000 IU, UNK, (5 DAYS PER WEEK-25,000ID TOTAL)
  12. LEVOTHYROXINE. [Concomitant]
     Active Substance: LEVOTHYROXINE
     Dosage: 0.025 MG, 1X/DAY (AM)
  13. COLESTIPOL [Concomitant]
     Active Substance: COLESTIPOL
     Dosage: 1000 MG, 2X/DAY (AM-PM)
  14. TRIAMTERENE + HCTZ [Concomitant]
     Active Substance: HYDROCHLOROTHIAZIDE\TRIAMTERENE
     Dosage: UNK, 1X/DAY [TRIAMTERENE: 75 MG-HYDROCHLOROTHIAZIDE 50 MG] (AM)
  15. POTASSIUM CHLORIDE. [Concomitant]
     Active Substance: POTASSIUM CHLORIDE
     Dosage: 10 MEQ, 2X/DAY (AM-PM)

REACTIONS (10)
  - Coronary artery disease [Unknown]
  - Pain [Unknown]
  - Chronic obstructive pulmonary disease [Unknown]
  - Contusion [Unknown]
  - Skin laceration [Unknown]
  - Blood sodium decreased [Unknown]
  - Upper limb fracture [Unknown]
  - Fall [Unknown]
  - Skin abrasion [Unknown]
  - Fluid retention [Unknown]

NARRATIVE: CASE EVENT DATE: 2019
